FAERS Safety Report 6256431-0 (Version None)
Quarter: 2009Q3

REPORT INFORMATION
  Report Type: 
  Country: None (occurrence: None)
  Receive Date: 20090706
  Receipt Date: 20090625
  Transmission Date: 20100115
  Serious: Yes (Other)
  Sender: FDA-Public Use
  Company Number: US-NOVOPROD-287396

PATIENT
  Age: 8 Year
  Sex: Male
  Weight: 20 kg

DRUGS (1)
  1. NORDITROPIN [Suspect]
     Indication: NOONAN SYNDROME
     Dosage: 1.4 MG 6 DAYS PER WEEK
     Route: 058
     Dates: start: 20060223

REACTIONS (2)
  - LEFT VENTRICULAR HYPERTROPHY [None]
  - TRICUSPID VALVE INCOMPETENCE [None]
